FAERS Safety Report 5565586-2 (Version None)
Quarter: 2007Q4

REPORT INFORMATION
  Report Type: 
  Country: None (occurrence: None)
  Receive Date: 20071218
  Receipt Date: 20071207
  Transmission Date: 20080405
  Serious: Yes (Other)
  Sender: FDA-Public Use
  Company Number: US-PFIZER INC-2007104663

PATIENT
  Sex: Male
  Weight: 117.9 kg

DRUGS (11)
  1. CHANTIX [Suspect]
     Indication: SMOKING CESSATION THERAPY
  2. TEGRETOL [Concomitant]
  3. KLONOPIN [Concomitant]
  4. PAXIL [Concomitant]
  5. DOXAZOSIN MESYLATE [Concomitant]
     Indication: PROSTATIC DISORDER
  6. DOXYCYCLINE [Concomitant]
     Indication: BRONCHITIS
  7. IMITREX [Concomitant]
     Dosage: FREQ:PERIODICALLY
  8. PROMETHAZINE [Concomitant]
     Indication: NAUSEA
  9. XANAX [Concomitant]
  10. BENTYL [Concomitant]
  11. HYOSCYAMINE [Concomitant]
     Dosage: FREQ:AS NEEDED

REACTIONS (2)
  - PARAESTHESIA [None]
  - RENAL PAIN [None]
